FAERS Safety Report 8237590-7 (Version None)
Quarter: 2012Q1

REPORT INFORMATION
  Report Type: 
  Country: None (occurrence: None)
  Receive Date: 20120323
  Receipt Date: 20120312
  Transmission Date: 20120608
  Serious: Yes (Life-Threatening)
  Sender: FDA-Public Use
  Company Number: LTI2011A00150

PATIENT
  Age: 56 Year
  Sex: Male

DRUGS (3)
  1. ACTOS [Suspect]
     Indication: TYPE 2 DIABETES MELLITUS
     Dosage: ORAL
     Route: 048
     Dates: start: 20040101, end: 20081231
  2. LEVOTHYROXINE SODIUM [Concomitant]
  3. ATORVASTATIN CALCIUM [Concomitant]

REACTIONS (1)
  - BLADDER CANCER [None]
